FAERS Safety Report 23770933 (Version 1)
Quarter: 2024Q2

REPORT INFORMATION
  Report Type: Spontaneous
  Country: US (occurrence: US)
  Receive Date: 20240423
  Receipt Date: 20240423
  Transmission Date: 20240716
  Serious: No
  Sender: FDA-Public Use
  Company Number: US-JNJFOC-20240459310

PATIENT
  Age: 63 Year
  Sex: Female

DRUGS (16)
  1. OPSUMIT [Suspect]
     Active Substance: MACITENTAN
     Indication: Product used for unknown indication
     Route: 048
     Dates: end: 202402
  2. TYVASO DPI [Suspect]
     Active Substance: TREPROSTINIL
     Indication: Pulmonary arterial hypertension
     Route: 055
  3. TREPROSTINIL [Suspect]
     Active Substance: TREPROSTINIL
     Indication: Pulmonary arterial hypertension
     Route: 055
     Dates: start: 20230227, end: 202402
  4. OMEPRAZOLE [Concomitant]
     Active Substance: OMEPRAZOLE
  5. PROAIR HFA [Concomitant]
     Active Substance: ALBUTEROL SULFATE
  6. AMLODIPINE BESYLATE [Concomitant]
     Active Substance: AMLODIPINE BESYLATE
  7. FUROSEMIDE [Concomitant]
     Active Substance: FUROSEMIDE
  8. ACETAMINOPHEN [Concomitant]
     Active Substance: ACETAMINOPHEN
  9. JARDIANCE [Concomitant]
     Active Substance: EMPAGLIFLOZIN
  10. DOCONEXENT\ICOSAPENT [Concomitant]
     Active Substance: DOCONEXENT\ICOSAPENT
  11. CENTRUM [ASCORBIC ACID;BIOTIN;CALCIUM;CALCIUM PANTOTHENATE;COLECALCIFE [Concomitant]
  12. OXYGEN [Concomitant]
     Active Substance: OXYGEN
  13. GABAPENTIN [Concomitant]
     Active Substance: GABAPENTIN
  14. CETIRIZINE HCL [Concomitant]
     Active Substance: CETIRIZINE HYDROCHLORIDE
  15. CYCLOBENZAPRINE HYDROCHLORIDE [Concomitant]
     Active Substance: CYCLOBENZAPRINE HYDROCHLORIDE
  16. BENZONATATE [Concomitant]
     Active Substance: BENZONATATE

REACTIONS (5)
  - Flatulence [Unknown]
  - Pain [Unknown]
  - Insomnia [Unknown]
  - Asthenia [Unknown]
  - Feeling abnormal [Unknown]
